FAERS Safety Report 9036226 (Version 2)
Quarter: 2013Q2

REPORT INFORMATION
  Report Type: Spontaneous
  Country: GB (occurrence: None)
  Receive Date: 20130114
  Receipt Date: 20130605
  Transmission Date: 20140414
  Serious: Yes (Death)
  Sender: FDA-Public Use
  Company Number: 1556440

PATIENT
  Age: 75 Year
  Sex: Female
  Weight: 54 kg

DRUGS (3)
  1. OXALIPLATIN [Suspect]
     Indication: COLORECTAL CANCER METASTATIC
  2. RALTITREXED DISODIUM [Suspect]
     Indication: COLORECTAL CANCER METASTATIC
  3. BEVACIZUMAB [Concomitant]
     Indication: COLORECTAL CANCER METASTATIC
     Dates: end: 20120913

REACTIONS (3)
  - Febrile neutropenia [None]
  - Gastrointestinal infection [None]
  - Diarrhoea [None]
